FAERS Safety Report 16078389 (Version 1)
Quarter: 2019Q1

REPORT INFORMATION
  Report Type: Spontaneous
  Country: US (occurrence: US)
  Receive Date: 20190315
  Receipt Date: 20190315
  Transmission Date: 20190418
  Serious: Yes (Hospitalization, Other)
  Sender: FDA-Public Use
  Company Number: US-ELI_LILLY_AND_COMPANY-US201903001181

PATIENT
  Sex: Female

DRUGS (3)
  1. NOVOLOG [Suspect]
     Active Substance: INSULIN ASPART
     Indication: PRODUCT USED FOR UNKNOWN INDICATION
     Dosage: UNK UNK, UNKNOWN
     Route: 065
  2. BASAGLAR [Suspect]
     Active Substance: INSULIN GLARGINE
     Indication: PRODUCT USED FOR UNKNOWN INDICATION
     Dosage: UNK UNK, UNKNOWN
     Route: 065
  3. HUMALOG [Suspect]
     Active Substance: INSULIN LISPRO
     Indication: PRODUCT USED FOR UNKNOWN INDICATION
     Dosage: UNK UNK, UNKNOWN
     Route: 065

REACTIONS (10)
  - Blood glucose increased [Recovered/Resolved]
  - Intestinal obstruction [Unknown]
  - Impaired healing [Unknown]
  - Post procedural complication [Unknown]
  - Ill-defined disorder [Recovered/Resolved]
  - Thrombosis [Unknown]
  - Neuropathy peripheral [Unknown]
  - Neuropathic arthropathy [Recovering/Resolving]
  - Loss of consciousness [Unknown]
  - Peripheral swelling [Unknown]
